FAERS Safety Report 8421714-2 (Version None)
Quarter: 2012Q2

REPORT INFORMATION
  Report Type: 
  Country: None (occurrence: None)
  Receive Date: 20120608
  Receipt Date: 20120604
  Transmission Date: 20120825
  Serious: Yes (Death)
  Sender: FDA-Public Use
  Company Number: US-ASTRAZENECA-2012SE20783

PATIENT
  Age: 58 Year
  Sex: Male

DRUGS (6)
  1. PRADAXA [Concomitant]
  2. SOTALOL HCL (AF) [Concomitant]
     Route: 048
  3. XARELTO [Concomitant]
     Route: 048
  4. LIPITOR [Concomitant]
     Route: 048
  5. CAPRELSA [Suspect]
     Indication: THYROID CANCER
     Route: 048
  6. LISINOPRIL [Concomitant]
     Route: 048

REACTIONS (4)
  - HEPATIC NEOPLASM [None]
  - DRY MOUTH [None]
  - DIARRHOEA [None]
  - COUGH [None]
